FAERS Safety Report 5101892-3 (Version None)
Quarter: 2006Q3

REPORT INFORMATION
  Report Type: 
  Country: None (occurrence: None)
  Receive Date: 20060907
  Receipt Date: 20060821
  Transmission Date: 20061208
  Serious: Yes (Hospitalization, Other)
  Sender: FDA-Public Use
  Company Number: US200608004333

PATIENT
  Age: 81 Year
  Sex: Female

DRUGS (1)
  1. FORTEO [Suspect]
     Indication: OSTEOPOROSIS
     Dates: start: 20050101

REACTIONS (9)
  - ACCIDENTAL OVERDOSE [None]
  - ASTHMA [None]
  - BLOOD PRESSURE DECREASED [None]
  - COUGH [None]
  - CYANOSIS [None]
  - INCORRECT DOSE ADMINISTERED [None]
  - MEDICATION ERROR [None]
  - OXYGEN SATURATION DECREASED [None]
  - PNEUMONIA [None]
